FAERS Safety Report 18261686 (Version 1)
Quarter: 2020Q3

REPORT INFORMATION
  Report Type: Spontaneous
  Country: US (occurrence: US)
  Receive Date: 20200912
  Receipt Date: 20200912
  Transmission Date: 20201103
  Serious: No
  Sender: FDA-Public Use
  Company Number: None

PATIENT
  Age: 61 Year
  Sex: Male
  Weight: 65.25 kg

DRUGS (3)
  1. VITAMIN D3 [Concomitant]
     Active Substance: CHOLECALCIFEROL
  2. FAMOTIDINE 10 MG. [Suspect]
     Active Substance: FAMOTIDINE
     Indication: GASTRITIS
     Route: 048
     Dates: start: 20200115, end: 20200907
  3. INSULIN [Concomitant]
     Active Substance: INSULIN NOS

REACTIONS (7)
  - Dizziness [None]
  - Memory impairment [None]
  - Insomnia [None]
  - Loss of personal independence in daily activities [None]
  - Headache [None]
  - Nightmare [None]
  - Pain [None]
